FAERS Safety Report 11871422 (Version 1)
Quarter: 2015Q4

REPORT INFORMATION
  Report Type: Spontaneous
  Country: US (occurrence: US)
  Receive Date: 20151228
  Receipt Date: 20151228
  Transmission Date: 20160305
  Serious: Yes (Hospitalization, Other)
  Sender: FDA-Public Use
  Company Number: US-CEDAR PHARMACEUTICALS-2015CDR00016

PATIENT
  Age: 15 Year
  Sex: Female

DRUGS (1)
  1. METHIMAZOLE. [Suspect]
     Active Substance: METHIMAZOLE
     Indication: BASEDOW^S DISEASE
     Dosage: 20 MG, 1X/DAY
     Route: 065

REACTIONS (3)
  - Thyrotoxic crisis [Recovered/Resolved]
  - Withdrawal syndrome [Unknown]
  - Pulmonary hypertension [Unknown]
